FAERS Safety Report 18365512 (Version 1)
Quarter: 2020Q4

REPORT INFORMATION
  Report Type: Spontaneous
  Country: US (occurrence: US)
  Receive Date: 20201009
  Receipt Date: 20201009
  Transmission Date: 20210114
  Serious: No
  Sender: FDA-Public Use
  Company Number: None

PATIENT
  Age: 87 Year
  Sex: Female

DRUGS (1)
  1. CAPECITABINE TAB 500MG [Suspect]
     Active Substance: CAPECITABINE
     Indication: COLON CANCER
     Route: 048
     Dates: start: 202009, end: 20201002

REACTIONS (4)
  - Diarrhoea [None]
  - Fatigue [None]
  - Dehydration [None]
  - Headache [None]

NARRATIVE: CASE EVENT DATE: 20201002
